FAERS Safety Report 7344101-7 (Version None)
Quarter: 2011Q1

REPORT INFORMATION
  Report Type: 
  Country: None (occurrence: None)
  Receive Date: 20110310
  Receipt Date: 20100614
  Transmission Date: 20110831
  Serious: No
  Sender: FDA-Public Use
  Company Number: A0864793A

PATIENT
  Age: 57 Year
  Sex: Male

DRUGS (2)
  1. NICOTINE POLACRILEX [Suspect]
  2. NICORETTE (MINT) [Suspect]
     Dates: start: 20100614, end: 20100614

REACTIONS (1)
  - HICCUPS [None]
